FAERS Safety Report 4855867-X (Version None)
Quarter: 2005Q4

REPORT INFORMATION
  Report Type: 
  Country: None (occurrence: None)
  Receive Date: 20051216
  Receipt Date: 20051212
  Transmission Date: 20060501
  Serious: Yes (Hospitalization)
  Sender: FDA-Public Use
  Company Number: 2005CG02059

PATIENT
  Age: 38 Year
  Sex: Male
  Weight: 87 kg

DRUGS (9)
  1. NEXIUM [Suspect]
     Route: 048
  2. TERCIAN [Suspect]
     Route: 048
  3. VASTAREL [Suspect]
     Route: 048
  4. STILNOX [Suspect]
     Route: 048
  5. ZYPREXA [Suspect]
     Route: 048
  6. SEROPLEX [Suspect]
     Route: 048
  7. VICTAN [Concomitant]
  8. XANAX [Concomitant]
  9. CORTANCYL [Concomitant]
     Dates: start: 20050701

REACTIONS (6)
  - ARTERIAL THROMBOSIS [None]
  - DEPRESSION [None]
  - DYSLIPIDAEMIA [None]
  - ILIAC ARTERY THROMBOSIS [None]
  - MUSCULOSKELETAL PAIN [None]
  - PULMONARY EMBOLISM [None]
